FAERS Safety Report 7943031-7 (Version None)
Quarter: 2011Q4

REPORT INFORMATION
  Report Type: 
  Country: None (occurrence: None)
  Receive Date: 20111128
  Receipt Date: 20111118
  Transmission Date: 20120403
  Serious: Yes (Congenital Anomaly, Other)
  Sender: FDA-Public Use
  Company Number: FR-UCBSA-045707

PATIENT
  Age: 24 Hour
  Sex: Male
  Weight: 3.62 kg

DRUGS (2)
  1. SPECIAFOLDINE [Concomitant]
     Route: 064
     Dates: start: 20110101, end: 20110101
  2. KEPPRA [Suspect]
     Indication: EPILEPSY
     Route: 064
     Dates: start: 20110101, end: 20111005

REACTIONS (2)
  - FOETAL EXPOSURE DURING PREGNANCY [None]
  - CLEFT LIP [None]
